FAERS Safety Report 5649765-1 (Version None)
Quarter: 2008Q1

REPORT INFORMATION
  Report Type: 
  Country: None (occurrence: None)
  Receive Date: 20080131
  Receipt Date: 20071121
  Transmission Date: 20080703
  Serious: No
  Sender: FDA-Public Use
  Company Number: US200711005758

PATIENT
  Age: 70 Year
  Sex: Female
  Weight: 77.1 kg

DRUGS (12)
  1. BYETTA [Suspect]
     Indication: TYPE 2 DIABETES MELLITUS
     Dosage: 5 UG, 2/D, SUBCUTANEOUS ; 10 UG, 2/D, SUBCUTANEOUS ; 5 UG, 2/D, SUBCUTANEOUS
     Route: 058
     Dates: start: 20070801, end: 20070101
  2. BYETTA [Suspect]
     Indication: TYPE 2 DIABETES MELLITUS
     Dosage: 5 UG, 2/D, SUBCUTANEOUS ; 10 UG, 2/D, SUBCUTANEOUS ; 5 UG, 2/D, SUBCUTANEOUS
     Route: 058
     Dates: start: 20070701, end: 20070801
  3. BYETTA [Suspect]
     Indication: TYPE 2 DIABETES MELLITUS
     Dosage: 5 UG, 2/D, SUBCUTANEOUS ; 10 UG, 2/D, SUBCUTANEOUS ; 5 UG, 2/D, SUBCUTANEOUS
     Route: 058
     Dates: start: 20070101
  4. ACTOS /USA/ PIOGLITAZONE HYDROCHLORIDE) [Concomitant]
  5. METFORMIN HCL [Concomitant]
  6. GLIPIZIDE [Concomitant]
  7. FOSINOPRIL SODIUM [Concomitant]
  8. PLAVIX [Concomitant]
  9. SYNTHROID [Concomitant]
  10. PRILOSEC [Concomitant]
  11. TOPROL-XL [Concomitant]
  12. CADUET (AMLODIPINE BESILATE, ATORVASTATIN CALCIUM) [Concomitant]

REACTIONS (7)
  - BLOOD GLUCOSE DECREASED [None]
  - CONSTIPATION [None]
  - DRUG EFFECT DECREASED [None]
  - NAUSEA [None]
  - NIGHT SWEATS [None]
  - TREMOR [None]
  - WEIGHT DECREASED [None]
